FAERS Safety Report 5313795-X (Version None)
Quarter: 2007Q2

REPORT INFORMATION
  Report Type: 
  Country: None (occurrence: None)
  Receive Date: 20070501
  Receipt Date: 20070427
  Transmission Date: 20071010
  Serious: Yes (Death, Hospitalization)
  Sender: FDA-Public Use
  Company Number: IT-BRISTOL-MYERS SQUIBB COMPANY-13762505

PATIENT
  Age: 79 Year
  Sex: Female

DRUGS (1)
  1. DASATINIB [Suspect]
     Route: 048
     Dates: start: 20061117, end: 20070410

REACTIONS (1)
  - SEPTIC SHOCK [None]
